FAERS Safety Report 8765867 (Version 1)
Quarter: 2012Q4

REPORT INFORMATION
  Report Type: 
  Country: KR (occurrence: KR)
  Receive Date: 20120904
  Receipt Date: 20120904
  Transmission Date: 20130627
  Serious: Yes (Other)
  Sender: FDA-Public Use
  Company Number: PHHY2012KR074196

PATIENT
  Age: 12 Year
  Sex: Male

DRUGS (3)
  1. CICLOSPORIN [Suspect]
     Indication: PROPHYLAXIS AGAINST GRAFT VERSUS HOST DISEASE
  2. CYCLOPHOSPHAMIDE [Concomitant]
     Indication: GRAFT VERSUS HOST DISEASE
  3. METHOTREXATE [Concomitant]
     Indication: GRAFT VERSUS HOST DISEASE

REACTIONS (10)
  - Wernicke^s encephalopathy [Recovered/Resolved]
  - Somnolence [Recovered/Resolved]
  - Confusional state [Recovered/Resolved]
  - Dizziness [Recovered/Resolved]
  - Nystagmus [Recovered/Resolved]
  - Nausea [Recovered/Resolved]
  - Vomiting [Recovered/Resolved]
  - Oral administration complication [Unknown]
  - Slow response to stimuli [Recovered/Resolved]
  - Intention tremor [None]
